FAERS Safety Report 4652166-6 (Version None)
Quarter: 2005Q2

REPORT INFORMATION
  Report Type: 
  Country: None (occurrence: None)
  Receive Date: 20050408
  Receipt Date: 20050128
  Transmission Date: 20051028
  Serious: No
  Sender: FDA-Public Use
  Company Number: 231945K04USA

PATIENT
  Age: 54 Year
  Sex: Female

DRUGS (4)
  1. REBIF [Suspect]
     Indication: MULTIPLE SCLEROSIS
     Dosage: 44 MCG, 3 IN 1 WEEKS, SUBCUTANEOUS
     Route: 058
     Dates: start: 20030728
  2. STEROIDS (UNSPECIFIED) (CORTICOSTEROID NOS) [Suspect]
     Dosage: INTRAVENOUS
     Route: 042
  3. SLEEPING PILL (ALL OTHER THERAPEUTIC PRODUCTS) [Concomitant]
  4. DARVOCET [Concomitant]

REACTIONS (4)
  - BLOOD PRESSURE INCREASED [None]
  - FATIGUE [None]
  - HEADACHE [None]
  - NERVOUS SYSTEM DISORDER [None]
